FAERS Safety Report 14228734 (Version 3)
Quarter: 2018Q2

REPORT INFORMATION
  Report Type: Report from Study
  Country: JP (occurrence: JP)
  Receive Date: 20171128
  Receipt Date: 20180427
  Transmission Date: 20180711
  Serious: Yes (Hospitalization, Other)
  Sender: FDA-Public Use
  Company Number: JP-BRISTOL-MYERS SQUIBB COMPANY-BMS-2017-107127

PATIENT
  Age: 66 Year
  Sex: Male

DRUGS (1)
  1. NIVOLUMAB [Suspect]
     Active Substance: NIVOLUMAB
     Indication: METASTATIC RENAL CELL CARCINOMA
     Dosage: 3 MG/KG, UNK
     Route: 042
     Dates: start: 20161222, end: 201707

REACTIONS (7)
  - Blood uric acid increased [Unknown]
  - Blood thyroid stimulating hormone increased [Not Recovered/Not Resolved]
  - Eating disorder [Unknown]
  - Pruritus [Not Recovered/Not Resolved]
  - Malignant neoplasm progression [Unknown]
  - Anaemia [Recovering/Resolving]
  - Hepatic function abnormal [Recovering/Resolving]

NARRATIVE: CASE EVENT DATE: 20170216
